FAERS Safety Report 14300158 (Version 1)
Quarter: 2017Q4

REPORT INFORMATION
  Report Type: Spontaneous
  Country: US (occurrence: US)
  Receive Date: 20171219
  Receipt Date: 20171219
  Transmission Date: 20180321
  Serious: Yes (Death, Hospitalization, Other)
  Sender: FDA-Public Use
  Company Number: US-VELOXIS PHARMACEUTICALS-2037365

PATIENT
  Age: 50 Year
  Sex: Male

DRUGS (9)
  1. RITUXIMAB. [Concomitant]
     Active Substance: RITUXIMAB
  2. OLANZAPINE. [Concomitant]
     Active Substance: OLANZAPINE
  3. AMIKACIN SULFATE. [Concomitant]
     Active Substance: AMIKACIN SULFATE
  4. AZTREONAM. [Concomitant]
     Active Substance: AZTREONAM
  5. VANCOMYCIN HYDROCHLORIDE. [Concomitant]
     Active Substance: VANCOMYCIN HYDROCHLORIDE
  6. ENVARSUS XR [Suspect]
     Active Substance: TACROLIMUS
     Indication: IMMUNOSUPPRESSANT DRUG THERAPY
     Route: 065
  7. LENALIDOMIDE [Concomitant]
     Active Substance: LENALIDOMIDE
  8. METRONIDAZOLE. [Concomitant]
     Active Substance: METRONIDAZOLE
  9. QUETIAPINE. [Concomitant]
     Active Substance: QUETIAPINE

REACTIONS (7)
  - Septic shock [Unknown]
  - Diffuse large B-cell lymphoma recurrent [Not Recovered/Not Resolved]
  - Neutropenic sepsis [Unknown]
  - Graft versus host disease in skin [Recovered/Resolved]
  - Intentional product use issue [Unknown]
  - Acute graft versus host disease in skin [Recovered/Resolved]
  - Infection [Fatal]
